FAERS Safety Report 12431714 (Version 1)
Quarter: 2016Q2

REPORT INFORMATION
  Report Type: Spontaneous
  Country: US (occurrence: None)
  Receive Date: 20160602
  Receipt Date: 20160602
  Transmission Date: 20160815
  Serious: No
  Sender: FDA-Public Use
  Company Number: None

PATIENT
  Age: 36 Year
  Sex: Female
  Weight: 58.97 kg

DRUGS (7)
  1. MACROBID [Suspect]
     Active Substance: NITROFURANTOIN\NITROFURANTOIN MONOHYDRATE
     Indication: URINARY TRACT INFECTION
     Route: 048
  2. CRANBERRY SUPPLEMENT [Concomitant]
  3. RITALIN [Concomitant]
     Active Substance: METHYLPHENIDATE HYDROCHLORIDE
  4. PROBIOTICS [Concomitant]
     Active Substance: PROBIOTICS NOS
  5. BIRTH CONTROL [Concomitant]
     Active Substance: UNSPECIFIED INGREDIENT
  6. ALIVE VITAMINS [Concomitant]
  7. MAGNESIUM SUPPLEMENT [Concomitant]

REACTIONS (8)
  - Arthralgia [None]
  - Pain [None]
  - Neck pain [None]
  - Headache [None]
  - Back pain [None]
  - Sleep disorder [None]
  - Movement disorder [None]
  - Chest pain [None]

NARRATIVE: CASE EVENT DATE: 20160529
